FAERS Safety Report 6540998-9 (Version None)
Quarter: 2010Q1

REPORT INFORMATION
  Report Type: 
  Country: None (occurrence: None)
  Receive Date: 20100118
  Receipt Date: 20100114
  Transmission Date: 20100710
  Serious: Yes (Death, Other)
  Sender: FDA-Public Use
  Company Number: PHHY2009BR47278

PATIENT
  Sex: Male

DRUGS (5)
  1. DIOVAN [Suspect]
     Indication: HYPERTENSION
     Dosage: ONE TABLET DAILY
     Route: 048
  2. SELOZOK [Concomitant]
     Indication: CARDIAC FAILURE CONGESTIVE
     Dosage: 1 TABLET DAILY
     Route: 048
  3. SUSTRATE [Concomitant]
     Indication: ARTERIOSCLEROSIS
     Dosage: 2 TABLETS DAILY
     Route: 048
  4. HIDRION [Concomitant]
     Indication: OEDEMA
     Dosage: 2 TABLETS DAILY
     Route: 048
  5. NOVONORM [Concomitant]
     Indication: DIABETES MELLITUS
     Dosage: 2 TABLETS DAILY
     Route: 048

REACTIONS (5)
  - BLADDER CATHETERISATION [None]
  - DEATH [None]
  - DYSURIA [None]
  - EATING DISORDER [None]
  - GENERAL PHYSICAL HEALTH DETERIORATION [None]
